FAERS Safety Report 12769168 (Version 1)
Quarter: 2016Q3

REPORT INFORMATION
  Report Type: Spontaneous
  Country: US (occurrence: US)
  Receive Date: 20160921
  Receipt Date: 20160921
  Transmission Date: 20161109
  Serious: No
  Sender: FDA-Public Use
  Company Number: US-WATSON-2016-14165

PATIENT

DRUGS (2)
  1. VALPROATE SEMISODIUM [Concomitant]
     Active Substance: DIVALPROEX SODIUM
     Indication: PRODUCT USED FOR UNKNOWN INDICATION
     Dosage: UNK, UNKNOWN
     Route: 065
  2. ALPRAZOLAM (WATSON LABORATORIES) [Suspect]
     Active Substance: ALPRAZOLAM
     Indication: PRODUCT USED FOR UNKNOWN INDICATION
     Dosage: UNKNOWN
     Route: 065

REACTIONS (7)
  - Hyperhidrosis [Unknown]
  - Insomnia [Unknown]
  - Paranoia [Unknown]
  - Muscle spasms [Unknown]
  - Panic attack [Unknown]
  - Depression [Unknown]
  - Migraine [Unknown]
